FAERS Safety Report 5443715-9 (Version None)
Quarter: 2007Q3

REPORT INFORMATION
  Report Type: 
  Country: None (occurrence: None)
  Receive Date: 20070730
  Receipt Date: 20070328
  Transmission Date: 20080115
  Serious: Yes (Other)
  Sender: FDA-Public Use
  Company Number: 237050

PATIENT
  Age: 44 Year
  Sex: Female

DRUGS (13)
  1. RITUXAN [Suspect]
     Indication: RHEUMATOID ARTHRITIS
     Dosage: 1000 MG, INTRAVENOUS
     Route: 042
     Dates: start: 20070215
  2. BENADRYL [Concomitant]
  3. STEROIDS (UNK INGREDIENTS) (STEROID NOS) [Concomitant]
  4. PREDNISONE TAB [Concomitant]
  5. PLAQUENIL [Concomitant]
  6. FOLIC ACID [Concomitant]
  7. CELEBREX [Concomitant]
  8. ASPIRIN [Concomitant]
  9. CLARITIN [Concomitant]
  10. FISH OIL (FISH OIL) [Concomitant]
  11. ASTELIN [Concomitant]
  12. FLONASE [Concomitant]
  13. MTX (METHOTREXATE) [Concomitant]

REACTIONS (3)
  - DIZZINESS [None]
  - HYPERTENSION [None]
  - RASH [None]
